FAERS Safety Report 6424443-X (Version None)
Quarter: 2009Q4

REPORT INFORMATION
  Report Type: 
  Country: None (occurrence: None)
  Receive Date: 20091029
  Receipt Date: 20091016
  Transmission Date: 20100525
  Serious: Yes (Other)
  Sender: FDA-Public Use
  Company Number: CIP09001966

PATIENT
  Age: 77 Year
  Sex: Female

DRUGS (4)
  1. RISEDRONATE SODIUM [Suspect]
     Indication: OSTEOPOROSIS
     Dosage: 35 MG ONCE WEEKLY, ORAL
     Route: 048
     Dates: start: 20080707, end: 20090705
  2. IPERTEN (MANIDIPINE HYDROCHLORIDE) [Concomitant]
  3. TENORMIN [Concomitant]
  4. ANTITHROMBOTIC AGENTS [Concomitant]

REACTIONS (1)
  - AMAUROSIS FUGAX [None]
